FAERS Safety Report 12946308 (Version 1)
Quarter: 2016Q4

REPORT INFORMATION
  Report Type: Spontaneous
  Country: GB (occurrence: GB)
  Receive Date: 20161115
  Receipt Date: 20161115
  Transmission Date: 20170207
  Serious: Yes (Other)
  Sender: FDA-Public Use
  Company Number: GB-ALLERGAN-1675952US

PATIENT
  Age: 68 Year
  Sex: Female

DRUGS (12)
  1. FULTIUM [Concomitant]
     Active Substance: CHOLECALCIFEROL
  2. PERINDOPRIL [Concomitant]
     Active Substance: PERINDOPRIL
  3. SENNA [Concomitant]
     Active Substance: SENNA LEAF\SENNOSIDES\SENNOSIDES A AND B
  4. ALENDRONIC ACID [Concomitant]
     Active Substance: ALENDRONIC ACID
  5. INDAPAMIDE. [Concomitant]
     Active Substance: INDAPAMIDE
  6. SIMVASTATIN. [Concomitant]
     Active Substance: SIMVASTATIN
  7. LAXIDO [Concomitant]
     Active Substance: POLYETHYLENE GLYCOL 3350\POTASSIUM CHLORIDE\SODIUM BICARBONATE\SODIUM CHLORIDE
  8. HYPROMELLOSE [Concomitant]
     Active Substance: HYPROMELLOSES
  9. CONSTELLA [Suspect]
     Active Substance: LINACLOTIDE
     Indication: CONSTIPATION
     Dosage: 290 ?G, UNK
     Route: 048
     Dates: start: 20160701, end: 20160921
  10. ADCAL D3 [Concomitant]
     Active Substance: CALCIUM CARBONATE\CHOLECALCIFEROL
  11. LACTULOSE. [Concomitant]
     Active Substance: LACTULOSE
  12. DIAZEPAM. [Concomitant]
     Active Substance: DIAZEPAM

REACTIONS (1)
  - Alanine aminotransferase increased [Recovering/Resolving]

NARRATIVE: CASE EVENT DATE: 20160825
